FAERS Safety Report 22043612 (Version 1)
Quarter: 2023Q1

REPORT INFORMATION
  Report Type: Report from Study
  Country: CA (occurrence: CA)
  Receive Date: 20230228
  Receipt Date: 20230228
  Transmission Date: 20230417
  Serious: Yes (Other)
  Sender: FDA-Public Use
  Company Number: CA-002147023-PHHY2019CA014493

PATIENT
  Age: 29 Year
  Sex: Female

DRUGS (2)
  1. JADENU [Suspect]
     Active Substance: DEFERASIROX
     Indication: Iron overload
     Dosage: 630 MG, BID
     Route: 048
     Dates: start: 20190116
  2. JADENU [Suspect]
     Active Substance: DEFERASIROX
     Indication: Anaemia
     Dosage: UNK
     Route: 048
     Dates: start: 20220510

REACTIONS (3)
  - Autoimmune haemolytic anaemia [Unknown]
  - Dysgeusia [Unknown]
  - Diarrhoea [Unknown]

NARRATIVE: CASE EVENT DATE: 20190101
